FAERS Safety Report 11661287 (Version 1)
Quarter: 2015Q4

REPORT INFORMATION
  Report Type: Report from Study
  Country: FR (occurrence: FR)
  Receive Date: 20151026
  Receipt Date: 20151026
  Transmission Date: 20160304
  Serious: Yes (Hospitalization)
  Sender: FDA-Public Use
  Company Number: FR-ABBVIE-15P-056-1486272-00

PATIENT
  Age: 54 Year
  Sex: Male

DRUGS (1)
  1. DUODOPA [Suspect]
     Active Substance: CARBIDOPA\LEVODOPA
     Indication: PARKINSON^S DISEASE
     Dosage: MD:5.4ML; CONTINUOUS FLOW RATE DURING THE DAY 2.4ML/H
     Route: 050

REACTIONS (4)
  - Stoma site inflammation [Unknown]
  - Device leakage [Unknown]
  - Stoma site erythema [Unknown]
  - Vomiting [Recovered/Resolved]

NARRATIVE: CASE EVENT DATE: 201509
